FAERS Safety Report 5650442-1 (Version None)
Quarter: 2008Q1

REPORT INFORMATION
  Report Type: 
  Country: None (occurrence: None)
  Receive Date: 20080305
  Receipt Date: 20080226
  Transmission Date: 20080703
  Serious: Yes (Death, Life-Threatening, Other)
  Sender: FDA-Public Use
  Company Number: JP-ELI_LILLY_AND_COMPANY-JP200802005432

PATIENT
  Age: 64 Year
  Sex: Female
  Weight: 47 kg

DRUGS (10)
  1. ZYPREXA [Suspect]
     Indication: SCHIZOPHRENIA
     Dosage: 10 MG, DAILY (1/D)
     Route: 048
     Dates: start: 20050613, end: 20050620
  2. ZYPREXA [Suspect]
     Dosage: 10 MG, DAILY (1/D)
     Route: 048
     Dates: start: 20050704, end: 20050814
  3. ZYPREXA [Suspect]
     Dosage: 20 MG, DAILY (1/D)
     Route: 048
     Dates: start: 20050815, end: 20061211
  4. ZYPREXA [Suspect]
     Dosage: 20 MG, DAILY (1/D)
     Route: 048
     Dates: start: 20061212, end: 20071209
  5. ZYPREXA [Suspect]
     Dosage: 30 MG, DAILY (1/D)
     Route: 048
     Dates: start: 20071210, end: 20071216
  6. ZYPREXA [Suspect]
     Dosage: 40 MG, DAILY (1/D)
     Route: 048
     Dates: start: 20071217
  7. LEVOTOMIN [Concomitant]
     Indication: SCHIZOPHRENIA
     Dosage: 500 MG, DAILY (1/D)
     Route: 048
  8. VEGETAMIN A [Concomitant]
     Indication: SCHIZOPHRENIA
     Dosage: 1 D/F, DAILY (1/D)
     Route: 048
  9. NITRAZEPAM [Concomitant]
     Indication: SCHIZOPHRENIA
     Dosage: 5 MG, DAILY (1/D)
     Route: 048
  10. BARNETIL [Concomitant]
     Indication: SCHIZOPHRENIA
     Dosage: 1800 MG, DAILY (1/D)
     Route: 048
     Dates: start: 20050619

REACTIONS (10)
  - BLOOD PRESSURE DECREASED [None]
  - DEATH [None]
  - DEPRESSED LEVEL OF CONSCIOUSNESS [None]
  - DRUG INEFFECTIVE [None]
  - ELECTROCARDIOGRAM QT PROLONGED [None]
  - FAECAL INCONTINENCE [None]
  - MULTIPLE DRUG OVERDOSE [None]
  - OXYGEN SATURATION DECREASED [None]
  - PYREXIA [None]
  - SCHIZOPHRENIA [None]
